FAERS Safety Report 20221871 (Version 1)
Quarter: 2021Q4

REPORT INFORMATION
  Report Type: Spontaneous
  Country: NL (occurrence: NL)
  Receive Date: 20211223
  Receipt Date: 20211223
  Transmission Date: 20220303
  Serious: Yes (Hospitalization, Other)
  Sender: FDA-Public Use
  Company Number: None

PATIENT
  Sex: Female
  Weight: 52 kg

DRUGS (1)
  1. VENTOLIN HFA [Suspect]
     Active Substance: ALBUTEROL SULFATE
     Indication: Asthma
     Dosage: 1 DF, QOD (3 X PER WEEK)
     Route: 065
     Dates: start: 20211215

REACTIONS (6)
  - Tinnitus [Unknown]
  - Heart rate increased [Unknown]
  - Dry mouth [Unknown]
  - Tremor [Unknown]
  - Headache [Unknown]
  - Cough [Unknown]
